FAERS Safety Report 9340608 (Version 2)
Quarter: 2013Q2

REPORT INFORMATION
  Report Type: Spontaneous
  Country: JP (occurrence: JP)
  Receive Date: 20130610
  Receipt Date: 20130628
  Transmission Date: 20140414
  Serious: Yes (Hospitalization)
  Sender: FDA-Public Use
  Company Number: JP-EISAI INC-E2020-12435-SPO-JP

PATIENT
  Age: 78 Year
  Sex: Female

DRUGS (11)
  1. ARICEPT [Suspect]
     Indication: DEMENTIA ALZHEIMER^S TYPE
     Route: 048
     Dates: start: 20130520, end: 20130521
  2. MERISLON [Concomitant]
     Indication: DIZZINESS
     Route: 048
  3. MYSLEE [Concomitant]
     Indication: INSOMNIA
     Route: 048
  4. EURODIN [Concomitant]
     Indication: INSOMNIA
     Route: 048
  5. MEILAX [Concomitant]
     Indication: INSOMNIA
     Route: 048
  6. CODEINE PHOSPHATE [Concomitant]
     Route: 048
  7. MOHRUS TAPE L [Concomitant]
     Indication: PROCEDURAL PAIN
  8. SERMION [Concomitant]
     Indication: DIZZINESS
     Route: 048
  9. TRINOSIN [Concomitant]
     Indication: DIZZINESS
     Route: 048
  10. ATELEC [Concomitant]
     Indication: HYPERTENSION
     Route: 048
  11. MEVALOTIN [Concomitant]
     Indication: DYSLIPIDAEMIA
     Route: 048

REACTIONS (5)
  - Altered state of consciousness [Recovering/Resolving]
  - Bradycardia [Recovering/Resolving]
  - Vertigo [Recovering/Resolving]
  - Nystagmus [Recovering/Resolving]
  - Nausea [Recovered/Resolved]
